FAERS Safety Report 8618189-7 (Version None)
Quarter: 2012Q3

REPORT INFORMATION
  Report Type: 
  Country: None (occurrence: None)
  Receive Date: 20120824
  Receipt Date: 20120314
  Transmission Date: 20120928
  Serious: No
  Sender: FDA-Public Use
  Company Number: US-ASTRAZENECA-2009SE29470

PATIENT
  Age: 86 Year
  Sex: Female
  Weight: 62.6 kg

DRUGS (8)
  1. DILTIAZEM [Concomitant]
     Indication: BLOOD PRESSURE ABNORMAL
  2. ASPIRIN [Concomitant]
  3. SYMBICORT [Suspect]
     Dosage: 160/4.5 MICROGRAMS UNKNOWN
     Route: 055
  4. ZYRTEC [Concomitant]
  5. NEXIUM [Concomitant]
  6. SYMBICORT [Suspect]
     Indication: ASTHMA
     Dosage: 740MCG BID
     Route: 055
  7. SYMBICORT [Suspect]
     Dosage: 160 MICROGAMS TWO PUFFS TWICE A DAY
     Route: 055
     Dates: start: 20080101
  8. HYDRALAZINE HCL [Concomitant]
     Indication: BLOOD PRESSURE ABNORMAL

REACTIONS (5)
  - ADVERSE EVENT [None]
  - TINEA PEDIS [None]
  - ASTHMA [None]
  - PAIN IN EXTREMITY [None]
  - INTENTIONAL DRUG MISUSE [None]
